FAERS Safety Report 6100352-0 (Version None)
Quarter: 2009Q1

REPORT INFORMATION
  Report Type: 
  Country: None (occurrence: None)
  Receive Date: 20090303
  Receipt Date: 20090219
  Transmission Date: 20090719
  Serious: Yes (Other)
  Sender: FDA-Public Use
  Company Number: CH-ELI_LILLY_AND_COMPANY-CH200902005635

PATIENT

DRUGS (4)
  1. CYMBALTA [Suspect]
     Dosage: UNK, DAILY (1/D)
     Route: 064
  2. CYMBALTA [Suspect]
     Dosage: 30 MG, DAILY (1/D)
     Route: 064
     Dates: end: 20081102
  3. REMERON [Concomitant]
     Dosage: 15 MG, DAILY (1/D)
     Route: 064
     Dates: end: 20081102
  4. LAMICTAL [Concomitant]
     Dosage: 25 MG, DAILY (1/D)
     Route: 064
     Dates: end: 20081031

REACTIONS (5)
  - DRUG EXPOSURE DURING PREGNANCY [None]
  - DRUG WITHDRAWAL SYNDROME NEONATAL [None]
  - HYPOTONIA NEONATAL [None]
  - NEONATAL TACHYPNOEA [None]
  - TREMOR NEONATAL [None]
